FAERS Safety Report 10858152 (Version 1)
Quarter: 2015Q1

REPORT INFORMATION
  Report Type: Spontaneous
  Country: US (occurrence: US)
  Receive Date: 20150223
  Receipt Date: 20150223
  Transmission Date: 20150721
  Serious: No
  Sender: FDA-Public Use
  Company Number: US-CELGENEUS-163-21880-14072472

PATIENT
  Sex: Female

DRUGS (1)
  1. REVLIMID [Suspect]
     Active Substance: LENALIDOMIDE
     Indication: PLASMA CELL MYELOMA
     Dosage: 15 MILLIGRAM
     Route: 048
     Dates: start: 201401

REACTIONS (10)
  - Fatigue [Unknown]
  - Weight decreased [Unknown]
  - Feeling jittery [Unknown]
  - Depressed level of consciousness [Unknown]
  - Insomnia [Unknown]
  - Constipation [Unknown]
  - Memory impairment [Unknown]
  - Epistaxis [Unknown]
  - Decreased appetite [Unknown]
  - Tremor [Unknown]
